FAERS Safety Report 10025765 (Version 1)
Quarter: 2014Q1

REPORT INFORMATION
  Report Type: Spontaneous
  Country: IT (occurrence: None)
  Receive Date: 20140314
  Receipt Date: 20140314
  Transmission Date: 20141002
  Serious: Yes (Other)
  Sender: FDA-Public Use
  Company Number: FK201400770

PATIENT
  Age: 43 Year
  Sex: Female

DRUGS (2)
  1. PACLITAXEL (MANUFACTURER UNKNOWN) (PACLITAXEL) (PACLITAXEL) [Suspect]
     Indication: OVARIAN CANCER
     Dosage: CYCLICAL?(NOT OTHERWISE SPECIFIED)
     Route: 042
     Dates: start: 20140203, end: 20140224
  2. CARBOPLATINO [Suspect]
     Indication: OVARIAN CANCER
     Dosage: CYCLICAL?(NOT OTHERWISE SPECIFIED)
     Route: 042
     Dates: start: 20140203, end: 20140224

REACTIONS (2)
  - Neutropenia [None]
  - Leukopenia [None]
